FAERS Safety Report 21125721 (Version 1)
Quarter: 2022Q3

REPORT INFORMATION
  Report Type: Spontaneous
  Country: US (occurrence: None)
  Receive Date: 20220722
  Receipt Date: 20220722
  Transmission Date: 20221027
  Serious: Yes (unspecified)
  Sender: FDA-Public Use
  Company Number: None

PATIENT
  Age: 31 Year
  Sex: Female
  Weight: 61.2 kg

DRUGS (9)
  1. TALTZ [Suspect]
     Active Substance: IXEKIZUMAB
     Indication: Psoriasis
     Dosage: FREQUENCY : MONTHLY;?
     Route: 058
  2. PAROXETINE [Concomitant]
     Active Substance: PAROXETINE
  3. SPIRONOLACTONE [Concomitant]
     Active Substance: SPIRONOLACTONE
  4. EMGALITY [Concomitant]
     Active Substance: GALCANEZUMAB-GNLM
  5. Velvet birth control [Concomitant]
  6. Naritriptan [Concomitant]
  7. BUSPAR [Concomitant]
     Active Substance: BUSPIRONE HYDROCHLORIDE
  8. VITAMIN C [Concomitant]
     Active Substance: ASCORBIC ACID
  9. CAFFEINE [Concomitant]
     Active Substance: CAFFEINE

REACTIONS (5)
  - Smear cervix abnormal [None]
  - Cervical dysplasia [None]
  - Immunosuppression [None]
  - Papilloma viral infection [None]
  - Infection reactivation [None]

NARRATIVE: CASE EVENT DATE: 20220711
